FAERS Safety Report 8772306 (Version 3)
Quarter: 2012Q4

REPORT INFORMATION
  Report Type: 
  Country: GB (occurrence: GB)
  Receive Date: 20120905
  Receipt Date: 20120927
  Transmission Date: 20130627
  Serious: Yes (Death)
  Sender: FDA-Public Use
  Company Number: PHFR2012GB004805

PATIENT
  Age: 70 Year
  Sex: Female

DRUGS (4)
  1. CLOZARIL [Suspect]
     Indication: SCHIZOPHRENIA
     Dosage: 62.5 mg, daily
     Route: 048
     Dates: start: 20090130
  2. CLOZARIL [Suspect]
     Dosage: 50 mg, daily
     Route: 048
     Dates: start: 201205
  3. SINEMET-PLUS [Concomitant]
     Indication: PARKINSON^S DISEASE
     Dosage: 6 DF, UNK
     Route: 048
  4. TOLCAPONE [Concomitant]
     Indication: PARKINSON^S DISEASE
     Dosage: 100 mg, TID

REACTIONS (4)
  - Coronary artery disease [Fatal]
  - Myocardial infarction [Fatal]
  - Neutrophil count increased [Unknown]
  - White blood cell count increased [Unknown]
